FAERS Safety Report 4601369-5 (Version None)
Quarter: 2005Q1

REPORT INFORMATION
  Report Type: 
  Country: None (occurrence: None)
  Receive Date: 20050308
  Receipt Date: 20050225
  Transmission Date: 20050727
  Serious: Yes (Hospitalization)
  Sender: FDA-Public Use
  Company Number: 200510712FR

PATIENT
  Age: 70 Year
  Sex: Female

DRUGS (3)
  1. KETEK [Suspect]
     Indication: BRONCHITIS
     Route: 048
     Dates: start: 20050126, end: 20050131
  2. KETEK [Suspect]
     Indication: SINUSITIS
     Route: 048
     Dates: start: 20050126, end: 20050131
  3. TAHOR [Concomitant]
     Indication: HYPERLIPIDAEMIA
     Route: 048
     Dates: end: 20050126

REACTIONS (1)
  - DERMATOMYOSITIS [None]
